FAERS Safety Report 5268396-9 (Version None)
Quarter: 2007Q1

REPORT INFORMATION
  Report Type: 
  Country: None (occurrence: None)
  Receive Date: 20070314
  Receipt Date: 20070314
  Transmission Date: 20070707
  Serious: Yes (Life-Threatening, Hospitalization)
  Sender: FDA-Public Use
  Company Number: None

PATIENT
  Age: 59 Year
  Sex: Female
  Weight: 61.6892 kg

DRUGS (1)
  1. TAMIFLU [Suspect]
     Indication: INFLUENZA
     Dosage: 1 CAPSULE 2 TIMES DAILY PO
     Route: 048
     Dates: start: 20070301, end: 20070303

REACTIONS (9)
  - ARRHYTHMIA [None]
  - BALANCE DISORDER [None]
  - DYSSTASIA [None]
  - FALL [None]
  - HALLUCINATION [None]
  - PHARMACEUTICAL PRODUCT COMPLAINT [None]
  - PNEUMONIA [None]
  - POOR QUALITY DRUG ADMINISTERED [None]
  - PRURITUS [None]
